FAERS Safety Report 8945858 (Version 3)
Quarter: 2013Q1

REPORT INFORMATION
  Report Type: Report from Study
  Country: JP (occurrence: JP)
  Receive Date: 20121205
  Receipt Date: 20130116
  Transmission Date: 20140127
  Serious: Yes (Hospitalization, Other)
  Sender: FDA-Public Use
  Company Number: PHHO2012JP015544

PATIENT
  Age: 70 Year
  Sex: Male
  Weight: 74 kg

DRUGS (6)
  1. ALISKIREN [Suspect]
     Indication: CARDIOVASCULAR DISORDER
     Dosage: UNK
     Dates: start: 20081016, end: 20111220
  2. MICARDIS [Concomitant]
     Indication: HYPERTENSION
     Dosage: 40 MG, UNK
     Route: 048
     Dates: start: 20080528
  3. AMLODIN [Concomitant]
     Indication: HYPERTENSION
     Dosage: 2.5 MG, UNK
     Route: 048
     Dates: start: 20080630
  4. FEBURIC [Concomitant]
     Indication: HYPERURICAEMIA
     Dosage: 20 MG, UNK
     Route: 048
     Dates: start: 20121010
  5. LOXONIN [Concomitant]
     Indication: MUSCULOSKELETAL STIFFNESS
     Dosage: 50 MG, UNK
     Route: 062
     Dates: start: 20120509
  6. LOXONIN [Concomitant]
     Dosage: 100 MG, UNK
     Route: 062
     Dates: start: 20120509

REACTIONS (1)
  - Rectal cancer [Recovered/Resolved]
